FAERS Safety Report 26069977 (Version 1)
Quarter: 2025Q4

REPORT INFORMATION
  Report Type: Spontaneous
  Country: US (occurrence: US)
  Receive Date: 20251120
  Receipt Date: 20251120
  Transmission Date: 20260118
  Serious: No
  Sender: CATALYST PHARMA
  Company Number: US-CATALYST PHARMACEUTICALS-US-CATA-25-01557

PATIENT
  Age: 7 Year
  Sex: Male
  Weight: 18.231 kg

DRUGS (5)
  1. AGAMREE [Suspect]
     Active Substance: VAMOROLONE
     Indication: Duchenne muscular dystrophy
     Dosage: 2.7 ML ONCE A DAY
     Route: 048
     Dates: start: 20250918
  2. CLONIDINE [Concomitant]
     Active Substance: CLONIDINE
     Indication: Autism spectrum disorder
     Dosage: 0.1 MG ONCE A DAY
     Route: 065
  3. ENALAPRIL [Concomitant]
     Active Substance: ENALAPRIL
     Indication: Cardiovascular event prophylaxis
     Dosage: 5 MG ONCE A DAY
     Route: 065
  4. VITAMIN D3 [Concomitant]
     Active Substance: CHOLECALCIFEROL
     Indication: Bone disorder
     Dosage: 1000 UNITS ONCE A DAY
     Route: 065
  5. VITAMIN D3 [Concomitant]
     Active Substance: CHOLECALCIFEROL
     Indication: Prophylaxis

REACTIONS (1)
  - Central venous catheter removal [Recovered/Resolved]

NARRATIVE: CASE EVENT DATE: 20250926
